FAERS Safety Report 20649701 (Version 1)
Quarter: 2022Q1

REPORT INFORMATION
  Report Type: Spontaneous
  Country: US (occurrence: US)
  Receive Date: 20220329
  Receipt Date: 20220329
  Transmission Date: 20220423
  Serious: No
  Sender: FDA-Public Use
  Company Number: US-SEBELA IRELAND LIMITED-2021SEB00139

PATIENT
  Sex: Male

DRUGS (1)
  1. NAFTIN [Suspect]
     Active Substance: NAFTIFINE HYDROCHLORIDE
     Dosage: UNK
     Dates: start: 202110, end: 20211104

REACTIONS (2)
  - Pruritus [Unknown]
  - Scab [Unknown]

NARRATIVE: CASE EVENT DATE: 20210101
